FAERS Safety Report 5198105-3 (Version None)
Quarter: 2006Q4

REPORT INFORMATION
  Report Type: 
  Country: None (occurrence: None)
  Receive Date: 20061228
  Receipt Date: 20061228
  Transmission Date: 20070319
  Serious: No
  Sender: FDA-Public Use
  Company Number: None

PATIENT
  Sex: Female
  Weight: 48.1 kg

DRUGS (4)
  1. CISPLATIN [Suspect]
     Dosage: 70.6 MG
  2. DOXORUBICIN HYDROCHLORIDE [Suspect]
     Dosage: 63.5 MG
  3. G-CSF (FILGRASTIM, AMGEN) [Suspect]
     Dosage: 1150 MCG
  4. TAXOL [Suspect]
     Dosage: 225.9 MG

REACTIONS (1)
  - NEUTROPENIA [None]
